FAERS Safety Report 5381677-3 (Version None)
Quarter: 2007Q3

REPORT INFORMATION
  Report Type: 
  Country: None (occurrence: None)
  Receive Date: 20070705
  Receipt Date: 20070705
  Transmission Date: 20080115
  Serious: Yes (Life-Threatening, Hospitalization, Other)
  Sender: FDA-Public Use
  Company Number: None

PATIENT
  Sex: Male
  Weight: 74.8435 kg

DRUGS (2)
  1. PROVENTIL-HFA [Suspect]
     Indication: EMPHYSEMA
     Dosage: 2 PUFFS 4 HRS INHAL
     Route: 055
     Dates: start: 19900101, end: 20040101
  2. ANY MDI W/HFA PROPELLANT [Suspect]
     Indication: ASBESTOSIS

REACTIONS (3)
  - DRUG INEFFECTIVE [None]
  - DYSPNOEA [None]
  - PHARMACEUTICAL PRODUCT COMPLAINT [None]
